APPROVED DRUG PRODUCT: NAPROXEN SODIUM
Active Ingredient: NAPROXEN SODIUM
Strength: EQ 500MG BASE
Dosage Form/Route: TABLET, EXTENDED RELEASE;ORAL
Application: A075416 | Product #001 | TE Code: AB
Applicant: ACTAVIS LABORATORIES FL INC
Approved: Aug 27, 2002 | RLD: No | RS: No | Type: RX